FAERS Safety Report 17811948 (Version 1)
Quarter: 2020Q2

REPORT INFORMATION
  Report Type: Spontaneous
  Country: BR (occurrence: BR)
  Receive Date: 20200521
  Receipt Date: 20200521
  Transmission Date: 20200714
  Serious: Yes (Hospitalization, Other)
  Sender: FDA-Public Use
  Company Number: BR-RISING PHARMA HOLDINGS, INC.-2020RIS000019

PATIENT
  Age: 45 Year
  Sex: Female

DRUGS (1)
  1. METHIMAZOLE. [Suspect]
     Active Substance: METHIMAZOLE
     Indication: BASEDOW^S DISEASE
     Dosage: 40 MILLIGRAM, QD
     Route: 065

REACTIONS (2)
  - Agranulocytosis [Unknown]
  - Sepsis [Recovering/Resolving]
